FAERS Safety Report 9002110 (Version 1)
Quarter: 2013Q1

REPORT INFORMATION
  Report Type: Spontaneous
  Country: US (occurrence: None)
  Receive Date: 20130103
  Receipt Date: 20130103
  Transmission Date: 20140127
  Serious: No
  Sender: FDA-Public Use
  Company Number: None

PATIENT
  Age: 64 Year
  Sex: Female
  Weight: 91.17 kg

DRUGS (9)
  1. DENOSUMAB [Suspect]
     Indication: OSTEOPOROSIS
     Dosage: Q 6 MONTHS
     Route: 058
     Dates: start: 20120806
  2. CALCIUM [Concomitant]
  3. VITAMIN D [Concomitant]
  4. CYMBALTA [Concomitant]
  5. HYDRODIURIL [Concomitant]
  6. LOPRESSOR [Concomitant]
  7. NEURONTIN [Concomitant]
  8. NORCO [Concomitant]
  9. SYNTHROID [Concomitant]

REACTIONS (1)
  - Osteonecrosis of jaw [None]
